FAERS Safety Report 4880254-8 (Version None)
Quarter: 2006Q1

REPORT INFORMATION
  Report Type: 
  Country: None (occurrence: None)
  Receive Date: 20060113
  Receipt Date: 20060103
  Transmission Date: 20060701
  Serious: Yes (Other)
  Sender: FDA-Public Use
  Company Number: IT-ABBOTT-06P-083-0321129-00

PATIENT
  Age: 29 Year
  Sex: Male

DRUGS (9)
  1. LOPINAVIR/RITONAVIR [Suspect]
     Indication: HIV INFECTION
  2. LOPINAVIR/RITONAVIR [Suspect]
  3. CYCLOSPORINE [Interacting]
     Indication: PEMPHIGUS
     Dosage: 5 MG/KG/DIE, MICROEMULSION
     Route: 048
  4. CYCLOSPORINE [Interacting]
     Dosage: 2.5 MG/KG/DIE
     Route: 048
  5. LAMIVUDINE [Interacting]
     Indication: HIV INFECTION
     Dosage: 300 MG/DIE
  6. TENOFOVIR [Interacting]
     Indication: HIV INFECTION
     Dosage: 300 MG/DIE
  7. DEFLAZACORT [Concomitant]
  8. DEFLAZACORT [Concomitant]
     Dosage: MAINTENANCE DOSE
  9. AZATHIOPRINE [Concomitant]

REACTIONS (6)
  - ABDOMINAL DISCOMFORT [None]
  - DRUG INTERACTION [None]
  - FATIGUE [None]
  - HEADACHE [None]
  - IMMUNOSUPPRESSANT DRUG LEVEL INCREASED [None]
  - NEPHROPATHY TOXIC [None]
